FAERS Safety Report 23947407 (Version 1)
Quarter: 2024Q2

REPORT INFORMATION
  Report Type: Report from Study
  Country: US (occurrence: US)
  Receive Date: 20240606
  Receipt Date: 20240606
  Transmission Date: 20240715
  Serious: No
  Sender: FDA-Public Use
  Company Number: US-BIOVITRUM-2024-US-008191

PATIENT
  Age: 49 Year
  Sex: Male

DRUGS (1)
  1. KINERET [Suspect]
     Active Substance: ANAKINRA
     Indication: Autoinflammatory disease
     Dosage: 100 MG, DAILY
     Route: 058
     Dates: start: 20240508

REACTIONS (2)
  - Skin lesion [Unknown]
  - Off label use [Not Recovered/Not Resolved]
